FAERS Safety Report 4355357-7 (Version None)
Quarter: 2004Q2

REPORT INFORMATION
  Report Type: 
  Country: None (occurrence: None)
  Receive Date: 20040504
  Receipt Date: 20040422
  Transmission Date: 20050107
  Serious: Yes (Death, Hospitalization)
  Sender: FDA-Public Use
  Company Number: US-JNJFOC-20040405904

PATIENT
  Age: 72 Year
  Sex: Female

DRUGS (3)
  1. LEVAQUIN [Suspect]
     Indication: CHRONIC OBSTRUCTIVE AIRWAYS DISEASE EXACERBATED
     Dates: start: 20031214
  2. LEVAQUIN [Suspect]
     Indication: CHRONIC OBSTRUCTIVE AIRWAYS DISEASE EXACERBATED
     Dates: start: 20031219
  3. ERYTHROMYCIN [Concomitant]

REACTIONS (3)
  - CHRONIC OBSTRUCTIVE AIRWAYS DISEASE EXACERBATED [None]
  - PULMONARY EMBOLISM [None]
  - STAPHYLOCOCCAL INFECTION [None]
